FAERS Safety Report 5906578-0 (Version None)
Quarter: 2008Q4

REPORT INFORMATION
  Report Type: 
  Country: None (occurrence: None)
  Receive Date: 20081002
  Receipt Date: 20080925
  Transmission Date: 20090506
  Serious: No
  Sender: FDA-Public Use
  Company Number: US-B.I. PHARMACEUTICALS,INC./RIDGEFIELD-2008-BP-14989BP

PATIENT
  Age: 66 Year
  Sex: Male

DRUGS (5)
  1. SPIRIVA [Suspect]
     Indication: CHRONIC OBSTRUCTIVE PULMONARY DISEASE
     Dosage: 18MCG
     Route: 055
     Dates: start: 20080924
  2. SPIRIVA [Suspect]
     Indication: EMPHYSEMA
  3. SPIRIVA [Suspect]
     Indication: WHEEZING
  4. BLOOD PRESSURE MEDICATION (UNSPECIFIED) [Concomitant]
  5. CHOLESTEROL MEDICATION (UNSPECIFIED) [Concomitant]

REACTIONS (1)
  - WHEEZING [None]
